FAERS Safety Report 10152848 (Version 1)
Quarter: 2014Q2

REPORT INFORMATION
  Report Type: Spontaneous
  Country: US (occurrence: US)
  Receive Date: 20140505
  Receipt Date: 20140505
  Transmission Date: 20141212
  Serious: No
  Sender: FDA-Public Use
  Company Number: US-ASTRAZENECA-2013SE63268

PATIENT
  Age: 56 Year
  Sex: Female

DRUGS (2)
  1. PRILOSEC OTC [Suspect]
     Dosage: 1 TABLET, EVERY FEW DAYS
     Route: 048
  2. ANALGESICS [Concomitant]
     Dosage: UNKNOWN

REACTIONS (2)
  - Paraesthesia oral [Recovered/Resolved]
  - Intentional product misuse [Unknown]
